FAERS Safety Report 25644632 (Version 1)
Quarter: 2025Q3

REPORT INFORMATION
  Report Type: Spontaneous
  Country: US (occurrence: US)
  Receive Date: 20250805
  Receipt Date: 20250805
  Transmission Date: 20251021
  Serious: No
  Sender: CIPLA
  Company Number: US-CIPLA LTD.-2025US09496

PATIENT

DRUGS (4)
  1. LENALIDOMIDE [Suspect]
     Active Substance: LENALIDOMIDE
     Indication: Plasma cell myeloma
     Dosage: 10 MILLIGRAM, QD (TAKE ONE CAPSULE (10 MG) BY MOUTH ONCE DAILY FOR 14 DAYS, 28 DAYS OFF OF EACH 42 D
     Route: 048
     Dates: start: 20250123, end: 20250430
  2. LENALIDOMIDE [Suspect]
     Active Substance: LENALIDOMIDE
     Dosage: 10 MILLIGRAM, QD (TAKE ONE CAPSULE (10 MG) BY MOUTH ONCE DAILY FOR 14 DAYS, 28 DAYS OFF OF EACH 42 D
     Route: 048
     Dates: start: 2025
  3. LENALIDOMIDE DR. REDDY^S [Concomitant]
     Indication: Plasma cell myeloma
     Dosage: 10 MILLIGRAM, QD (TAKE ONE CAPSULE (10 MG) BY MOUTH ONCE DAILY FOR 14 DAYS, 28 DAYS OFF OF EACH 42 D
     Route: 048
     Dates: start: 202501
  4. LENALIDOMIDE DR. REDDY^S [Concomitant]
     Dosage: 10 MILLIGRAM, QD (TAKE ONE CAPSULE (10 MG) BY MOUTH ONCE DAILY FOR 14 DAYS, 28 DAYS OFF OF EACH 42 D
     Route: 048
     Dates: start: 202502

REACTIONS (1)
  - Peripheral swelling [Recovering/Resolving]

NARRATIVE: CASE EVENT DATE: 20250101
